FAERS Safety Report 7212040-8 (Version None)
Quarter: 2010Q4

REPORT INFORMATION
  Report Type: 
  Country: None (occurrence: None)
  Receive Date: 20101229
  Receipt Date: 20101214
  Transmission Date: 20110411
  Serious: Yes (Other)
  Sender: FDA-Public Use
  Company Number: AUR-APL-2010-03150

PATIENT
  Sex: Female

DRUGS (1)
  1. SIMVASTATIN 20MG TABLET [Suspect]

REACTIONS (5)
  - ABDOMINAL DISCOMFORT [None]
  - DRUG DISPENSING ERROR [None]
  - MALAISE [None]
  - MEDICATION ERROR [None]
  - WRONG DRUG ADMINISTERED [None]
